FAERS Safety Report 22873100 (Version 2)
Quarter: 2024Q1

REPORT INFORMATION
  Report Type: Spontaneous
  Country: US (occurrence: US)
  Receive Date: 20230828
  Receipt Date: 20240321
  Transmission Date: 20240410
  Serious: Yes (Hospitalization, Other)
  Sender: FDA-Public Use
  Company Number: US-AMNEAL PHARMACEUTICALS-2023-AMRX-02884

PATIENT
  Age: 46 Year
  Sex: Female

DRUGS (24)
  1. ACTIVELLA [Suspect]
     Active Substance: ESTRADIOL\NORETHINDRONE ACETATE
     Indication: Endometriosis
     Dosage: EVERY 1 DAYS
     Route: 048
     Dates: start: 20191011, end: 20200220
  2. ACTIVELLA [Suspect]
     Active Substance: ESTRADIOL\NORETHINDRONE ACETATE
     Dosage: EVERY 1 DAYS
     Route: 048
     Dates: start: 20200228
  3. ELAGOLIX [Suspect]
     Active Substance: ELAGOLIX
     Indication: Endometriosis
     Dosage: 200 MG, 2/DAYS
     Route: 048
     Dates: start: 20190429, end: 20191011
  4. ELAGOLIX [Suspect]
     Active Substance: ELAGOLIX
     Dosage: 200 MG, 2/DAYS
     Route: 048
     Dates: start: 20191011, end: 20200220
  5. ELAGOLIX [Suspect]
     Active Substance: ELAGOLIX
     Dosage: 200 MILLIGRAM, 2 /DAY
     Route: 048
     Dates: start: 20200228
  6. PLACEBO [Suspect]
     Active Substance: PLACEBO
     Indication: Endometriosis
     Dosage: EVERY 1 DAY
     Route: 048
     Dates: start: 20190429, end: 20191011
  7. ZYRTEC [Concomitant]
     Active Substance: CETIRIZINE HYDROCHLORIDE
     Indication: Rhinitis allergic
     Dosage: 10 MG, EVERY 1 DAYS
     Route: 065
     Dates: start: 20181003
  8. ALBUTEROL SULFATE [Concomitant]
     Active Substance: ALBUTEROL SULFATE
     Indication: Asthma
     Dosage: 2 PUFFS, AS NECESSARY
     Route: 065
     Dates: start: 20170811
  9. IPRATROPIUM BROMIDE [Concomitant]
     Active Substance: IPRATROPIUM BROMIDE\IPRATROPIUM BROMIDE ANHYDROUS
     Indication: Rhinitis allergic
     Dosage: 2 SPRAYS, EVERY 1 DAYS
     Route: 065
     Dates: start: 20181003
  10. FLUTICASONE PROPIONATE\SALMETEROL XINAFOATE [Concomitant]
     Active Substance: FLUTICASONE PROPIONATE\SALMETEROL XINAFOATE
     Indication: Asthma
     Dosage: 1 PUFF, EVERY 1 DAYS
     Route: 048
     Dates: start: 20181003
  11. FOLIC ACID\IRON\MINERALS\VITAMINS [Concomitant]
     Active Substance: FOLIC ACID\IRON\MINERALS\VITAMINS
     Indication: Haematocrit decreased
     Dosage: 1 CAPSULE, EVERY 1 DAYS
     Route: 048
     Dates: start: 20190131
  12. VITRON [Concomitant]
     Indication: Haematocrit decreased
     Dosage: 1 CAPSULE, EVERY 1 DAYS
     Route: 065
     Dates: start: 20190311
  13. XYLITOL [Concomitant]
     Active Substance: XYLITOL
     Indication: Dry mouth
     Dosage: 1 TABLET, AS NECESSARY
     Route: 048
     Dates: start: 20190628
  14. MIRALAX [Concomitant]
     Active Substance: POLYETHYLENE GLYCOL 3350
     Indication: Constipation
     Dosage: 17 G, AS NECESSARY
     Route: 065
     Dates: start: 20190822
  15. SUCRALFATE RPG [Concomitant]
     Indication: Gastric ulcer
     Dosage: 1 TAB, 4/DAYS
     Route: 065
     Dates: start: 20200110
  16. ZOFRAN [Concomitant]
     Active Substance: ONDANSETRON HYDROCHLORIDE
     Indication: Vomiting
     Dosage: AS NECESSARY
     Route: 065
     Dates: start: 20200221, end: 20200301
  17. PANTOPRAZOLE SODIUM [Concomitant]
     Active Substance: PANTOPRAZOLE SODIUM
     Indication: Gastric ulcer
     Dosage: 40 MG, EVERY 1 DAYS
     Route: 065
     Dates: start: 20211207
  18. TRAZODONE HYDROCHLORIDE [Concomitant]
     Active Substance: TRAZODONE HYDROCHLORIDE
     Indication: Insomnia
     Dosage: 50 MG, EVERY NIGHT, EVERY 1 DAYS
     Route: 065
     Dates: start: 20180824
  19. METHOCARBAMOL [Concomitant]
     Active Substance: METHOCARBAMOL
     Indication: Muscle spasms
     Dosage: 750 MG, 3/DAYS
     Route: 065
     Dates: start: 20220221
  20. SINGULAIR [Concomitant]
     Active Substance: MONTELUKAST SODIUM
     Indication: Rhinitis allergic
     Dosage: 10 MG, EVERY 1 DAYS
     Route: 065
     Dates: start: 20181003
  21. CLARITHROMYCIN [Concomitant]
     Active Substance: CLARITHROMYCIN
     Indication: Helicobacter infection
     Dosage: UNK
     Route: 065
     Dates: start: 20191219, end: 20191219
  22. HYOSCYAMINE [Concomitant]
     Active Substance: HYOSCYAMINE
     Indication: Abdominal pain upper
     Dosage: UNK
     Route: 065
     Dates: start: 20191106, end: 20191111
  23. AMOXICILLIN [Concomitant]
     Active Substance: AMOXICILLIN
     Indication: Helicobacter infection
     Dosage: UNK
     Route: 065
     Dates: start: 20191206, end: 20191206
  24. MINERALS\VITAMINS [Concomitant]
     Active Substance: MINERALS\VITAMINS
     Indication: Vitamin supplementation
     Dosage: 1 CAPSULES, QD
     Route: 065
     Dates: start: 20190207

REACTIONS (2)
  - Intestinal perforation [Recovered/Resolved]
  - Abscess intestinal [Recovered/Resolved]

NARRATIVE: CASE EVENT DATE: 20200221
